FAERS Safety Report 10923327 (Version 1)
Quarter: 2015Q1

REPORT INFORMATION
  Report Type: Spontaneous
  Country: US (occurrence: US)
  Receive Date: 20150318
  Receipt Date: 20150318
  Transmission Date: 20150721
  Serious: Yes (Other)
  Sender: FDA-Public Use
  Company Number: US-AMGEN-USASP2015022922

PATIENT
  Age: 25 Year

DRUGS (8)
  1. TIZANIDINE (TIZANIDINE) [Concomitant]
     Active Substance: TIZANIDINE
     Dosage: UNK
  2. ENBREL [Suspect]
     Active Substance: ETANERCEPT
     Indication: PSORIATIC ARTHROPATHY
     Dosage: UNK
     Route: 065
  3. OMEPRAZOLE. [Concomitant]
     Active Substance: OMEPRAZOLE
     Dosage: UNK
  4. OTEZLA [Concomitant]
     Active Substance: APREMILAST
     Dosage: UNK
  5. METHOTREXATE [Concomitant]
     Active Substance: METHOTREXATE
     Dosage: UNK
  6. LYRICA [Concomitant]
     Active Substance: PREGABALIN
     Dosage: UNK
  7. RELAFEN [Concomitant]
     Active Substance: NABUMETONE
     Dosage: UNK
  8. TRAMADOL [Concomitant]
     Active Substance: TRAMADOL
     Dosage: UNK

REACTIONS (8)
  - Hiatus hernia [Unknown]
  - Pain [Unknown]
  - Irritable bowel syndrome [Unknown]
  - Fibromyalgia [Unknown]
  - Endometriosis [Unknown]
  - Sjogren^s syndrome [Unknown]
  - No therapeutic response [Unknown]
  - Psoriasis [Unknown]
